FAERS Safety Report 13049623 (Version 8)
Quarter: 2018Q1

REPORT INFORMATION
  Report Type: Spontaneous
  Country: IN (occurrence: IN)
  Receive Date: 20161221
  Receipt Date: 20180329
  Transmission Date: 20180508
  Serious: Yes (Other)
  Sender: FDA-Public Use
  Company Number: IN-PFIZER INC-2016586302

PATIENT
  Age: 59 Year
  Sex: Female
  Weight: 54 kg

DRUGS (7)
  1. LETROZOLE. [Concomitant]
     Active Substance: LETROZOLE
     Dosage: 2.5 MG, 1X/DAY
     Route: 048
     Dates: start: 20161127
  2. CALCIROL [Concomitant]
     Dosage: UNK (ONCE IN 15 DAYS)
  3. NITROFURANTOIN. [Concomitant]
     Active Substance: NITROFURANTOIN
     Dosage: 100 MG, 2X/DAY
  4. PALBACE [Suspect]
     Active Substance: PALBOCICLIB
     Indication: BREAST CANCER METASTATIC
     Dosage: 125 MG, 1X/DAY
     Route: 048
     Dates: start: 20161127, end: 20161216
  5. XGEVA [Concomitant]
     Active Substance: DENOSUMAB
     Dosage: 120 MG, UNK
  6. PALBACE [Suspect]
     Active Substance: PALBOCICLIB
     Dosage: 100 MG, 1X/DAY (3/4WEEKS)
  7. TUGAIN [Concomitant]
     Active Substance: MINOXIDIL
     Dosage: UNK UNK, 2X/DAY (10% LA 1ML)

REACTIONS (5)
  - White blood cell count abnormal [Unknown]
  - Pyrexia [Unknown]
  - Abdominal pain [Unknown]
  - Haematochezia [Recovered/Resolved]
  - Urinary tract infection [Unknown]

NARRATIVE: CASE EVENT DATE: 20161216
